FAERS Safety Report 15353306 (Version 1)
Quarter: 2018Q3

REPORT INFORMATION
  Report Type: Spontaneous
  Country: US (occurrence: US)
  Receive Date: 20180830
  Receipt Date: 20180830
  Transmission Date: 20181010
  Serious: Yes (Hospitalization, Disabling)
  Sender: FDA-Public Use
  Company Number: None

PATIENT
  Age: 81 Year
  Sex: Male
  Weight: 102.6 kg

DRUGS (18)
  1. CEFEPIME 1GM IV Q 8 HR [Concomitant]
  2. FOLIC ACID 0.8MG PO Q HS [Concomitant]
  3. VORAPAXAR [Suspect]
     Active Substance: VORAPAXAR
     Indication: ANTICOAGULANT THERAPY
     Route: 048
     Dates: start: 20161101, end: 20180626
  4. ALLOPURINOL 300 MG PO QDAY [Concomitant]
  5. LOSARTAN 100 MG PO Q DAY [Concomitant]
  6. INSULIN ASPART SLIDING SCALE [Concomitant]
  7. VITAMIN D3 1000 UNITS PO QDAY [Concomitant]
  8. ALFUZOSIN 10 MG PO QHS [Concomitant]
  9. LIDOCAINE 5% TOPICAL PATCH Q DAY [Concomitant]
  10. VORAPAXAR (ZONTIVITY) 2.08MG PO QDAY [Concomitant]
  11. ASPIRIN 81 MG PO QHS [Concomitant]
  12. DORZOLAMIDE AND TIMOLOL (COSOPT) OPHTHALMIC SOLUT. 1 DROP BOTH EYES [Concomitant]
  13. HEPARIN 5000 UNITS SQ Q8 HR [Concomitant]
  14. ATORVASTATIN 20 MG PO QHS [Concomitant]
  15. BRIMONIDINE 0.15% OPHTHALMIC SOLUTION1 DROP AFFECTED EYE Q 12 HR [Concomitant]
  16. CARVEDILOL 3.125 MG PO BID [Concomitant]
  17. INSULIN DETEMIR 10 UNITS Q HS [Concomitant]
  18. SPIRONOLACTONE 25 MG PO QDAY [Concomitant]

REACTIONS (8)
  - Muscle haemorrhage [None]
  - Dysstasia [None]
  - Internal haemorrhage [None]
  - Gait disturbance [None]
  - Muscular weakness [None]
  - Ecchymosis [None]
  - Muscle spasms [None]
  - Retroperitoneal haemorrhage [None]

NARRATIVE: CASE EVENT DATE: 20180626
